FAERS Safety Report 24800131 (Version 3)
Quarter: 2025Q2

REPORT INFORMATION
  Report Type: Spontaneous
  Country: US (occurrence: US)
  Receive Date: 20250102
  Receipt Date: 20250611
  Transmission Date: 20250716
  Serious: No
  Sender: BLUEPRINT MEDICINES
  Company Number: US-Blueprint Medicines Corporation-2024-AER-00055

PATIENT
  Age: 72 Year
  Sex: Male

DRUGS (4)
  1. AYVAKIT [Suspect]
     Active Substance: AVAPRITINIB
     Indication: Gastrointestinal stromal tumour
     Route: 048
     Dates: start: 20240620
  2. LEVOTHYROXINE [Concomitant]
     Active Substance: LEVOTHYROXINE
     Indication: Product used for unknown indication
     Route: 065
  3. IMDOIDUM A-D [Concomitant]
     Indication: Diarrhoea
     Route: 065
  4. IMDOIDUM A-D [Concomitant]
     Indication: Decreased appetite

REACTIONS (2)
  - Diarrhoea [Unknown]
  - Decreased appetite [Unknown]
